FAERS Safety Report 14893388 (Version 1)
Quarter: 2018Q2

REPORT INFORMATION
  Report Type: Spontaneous
  Country: US (occurrence: US)
  Receive Date: 20180426
  Receipt Date: 20180426
  Transmission Date: 20180711
  Serious: Yes (Disabling)
  Sender: FDA-Public Use
  Company Number: None

PATIENT
  Age: 66 Year
  Sex: Female
  Weight: 67.5 kg

DRUGS (8)
  1. GINGER TEA [Concomitant]
  2. TRAZODONE [Concomitant]
     Active Substance: TRAZODONE HYDROCHLORIDE
  3. FISH OIL-OMEGA 3 [Concomitant]
  4. DAILY MULTI-VITAMIN [Concomitant]
     Active Substance: VITAMINS
  5. MAGNESIUM [Concomitant]
     Active Substance: MAGNESIUM
  6. TERBINAFINE. [Suspect]
     Active Substance: TERBINAFINE
     Indication: ONYCHOMYCOSIS
  7. CHROMIUM [Concomitant]
     Active Substance: CHROMIC CHLORIDE\CHROMIUM
  8. CHAMOMILE TEA [Concomitant]
     Active Substance: MATRICARIA RECUTITA

REACTIONS (2)
  - Akathisia [None]
  - Generalised anxiety disorder [None]

NARRATIVE: CASE EVENT DATE: 20151123
